FAERS Safety Report 25222166 (Version 1)
Quarter: 2025Q2

REPORT INFORMATION
  Report Type: Spontaneous
  Country: US (occurrence: US)
  Receive Date: 20250421
  Receipt Date: 20250421
  Transmission Date: 20250716
  Serious: Yes (Other)
  Sender: NOVARTIS
  Company Number: US-002147023-NVSC2025US063771

PATIENT
  Age: 62 Year
  Sex: Female

DRUGS (1)
  1. DABRAFENIB\TRAMETINIB [Suspect]
     Active Substance: DABRAFENIB\TRAMETINIB
     Indication: Metastatic malignant melanoma
     Route: 048

REACTIONS (3)
  - Deep vein thrombosis [Recovered/Resolved]
  - Pulmonary embolism [Recovered/Resolved]
  - Rash [Recovered/Resolved]
